FAERS Safety Report 4504193-7 (Version None)
Quarter: 2004Q4

REPORT INFORMATION
  Report Type: 
  Country: None (occurrence: None)
  Receive Date: 20041116
  Receipt Date: 20041116
  Transmission Date: 20050328
  Serious: No
  Sender: FDA-Public Use
  Company Number: None

PATIENT
  Age: 42 Year
  Sex: Male

DRUGS (7)
  1. PROZAC [Suspect]
     Dosage: 1 CAP DAILY
     Dates: start: 20020101
  2. SYNTHROID [Concomitant]
  3. PROTONIX [Concomitant]
  4. ALBUTEROL [Concomitant]
  5. LISINOPRIL [Concomitant]
  6. ZYPREXA [Concomitant]
  7. ZONEGRAN [Concomitant]

REACTIONS (5)
  - ASTHMA [None]
  - CONVULSION [None]
  - DIABETES MELLITUS [None]
  - GASTROOESOPHAGEAL REFLUX DISEASE [None]
  - HYPOTHYROIDISM [None]
